FAERS Safety Report 6765180-1 (Version None)
Quarter: 2010Q2

REPORT INFORMATION
  Report Type: 
  Country: None (occurrence: None)
  Receive Date: 20100610
  Receipt Date: 20100610
  Transmission Date: 20101027
  Serious: Yes (Life-Threatening)
  Sender: FDA-Public Use
  Company Number: None

PATIENT
  Age: 63 Year
  Sex: Female
  Weight: 49.6 kg

DRUGS (4)
  1. LOVENOX [Suspect]
     Indication: SURGERY
     Dosage: 40MG X1 SQ; 60 MG Q12HRS SQ
     Route: 058
     Dates: start: 20100429, end: 20100429
  2. LOVENOX [Suspect]
     Indication: SURGERY
     Dosage: 40MG X1 SQ; 60 MG Q12HRS SQ
     Route: 058
     Dates: start: 20100430, end: 20100504
  3. COUMADIN [Concomitant]
  4. ZOFRAN [Concomitant]

REACTIONS (3)
  - ACUTE ABDOMEN [None]
  - HAEMATOMA [None]
  - INTESTINAL PERFORATION [None]
